FAERS Safety Report 8616571 (Version 2)
Quarter: 2014Q2

REPORT INFORMATION
  Report Type: Spontaneous
  Country: GB (occurrence: None)
  Receive Date: 20120531
  Receipt Date: 20140404
  Transmission Date: 20141212
  Serious: Yes (Death, Hospitalization)
  Sender: FDA-Public Use
  Company Number: FK201201424

PATIENT
  Age: 67 Year
  Sex: Male

DRUGS (4)
  1. CISPLATIN [Suspect]
     Indication: GASTRIC CANCER
     Dosage: 120 MG, INTRAVENOUS
     Route: 042
     Dates: start: 20111117
  2. EPIRUBICIN [Suspect]
     Indication: GASTRIC CANCER
     Dosage: 50 MG, INTRAVENOUS (NOT OTHERWISE SPECIFIED)
     Route: 042
     Dates: start: 20110922
  3. CAPECITABINE [Suspect]
     Indication: GASTRIC CANCER
     Dosage: 5250 MG, ORAL
     Route: 048
     Dates: start: 20111208
  4. BEVACIZUMAB [Suspect]
     Indication: GASTRIC CANCER
     Dosage: 655 MG, INTRAVENOUS (NOT OTHERWISE SPECIFIED)
     Route: 042
     Dates: start: 20110922

REACTIONS (2)
  - Gastrointestinal anastomotic leak [None]
  - Post procedural haemorrhage [None]
